FAERS Safety Report 10233456 (Version 2)
Quarter: 2014Q3

REPORT INFORMATION
  Report Type: Spontaneous
  Country: JP (occurrence: JP)
  Receive Date: 20140612
  Receipt Date: 20140731
  Transmission Date: 20150326
  Serious: Yes (Other)
  Sender: FDA-Public Use
  Company Number: PHHY2014JP068593

PATIENT
  Age: 84 Year
  Sex: Female

DRUGS (13)
  1. ARIPIPRAZOLE [Concomitant]
     Active Substance: ARIPIPRAZOLE
     Dosage: 3 MG, UNK
     Route: 048
     Dates: start: 20110205, end: 20110401
  2. TIAPRIDE [Concomitant]
     Active Substance: TIAPRIDE
     Dosage: 50 MG, UNK
     Route: 048
  3. RISPERIDONE. [Concomitant]
     Active Substance: RISPERIDONE
     Dosage: 1 MG, UNK
     Route: 048
  4. BIPERIDEN [Concomitant]
     Active Substance: BIPERIDEN
     Dosage: 2 MG, UNK
     Route: 048
  5. SYMMETREL [Suspect]
     Active Substance: AMANTADINE HYDROCHLORIDE
     Indication: PARKINSONIAN GAIT
     Dosage: 100 MG, DAILY
     Route: 048
     Dates: start: 20110205, end: 20111103
  6. TIAPRIDE [Concomitant]
     Active Substance: TIAPRIDE
     Dosage: 75 MG, UNK
     Route: 048
  7. ABILIFY [Concomitant]
     Active Substance: ARIPIPRAZOLE
     Dosage: 3 MG, UNK
     Route: 048
     Dates: start: 20110205
  8. RISPERIDONE. [Concomitant]
     Active Substance: RISPERIDONE
     Dosage: 1 MG, UNK
     Route: 048
     Dates: start: 20110402, end: 20110429
  9. AKINETON [Concomitant]
     Active Substance: BIPERIDEN HYDROCHLORIDE
     Dosage: 2 MG, UNK
     Route: 048
  10. YOKUKANSAN [Concomitant]
     Active Substance: HERBALS
     Dosage: 7.5 MG, UNK
     Route: 048
  11. TIAPRIDE [Concomitant]
     Active Substance: TIAPRIDE
     Dosage: 75 MG, UNK
     Route: 048
  12. AKINETON [Concomitant]
     Active Substance: BIPERIDEN HYDROCHLORIDE
     Dosage: 2 MG, UNK
     Route: 048
     Dates: start: 20110205
  13. BIPERIDEN [Concomitant]
     Active Substance: BIPERIDEN
     Dosage: 3 MG, UNK
     Route: 048

REACTIONS (12)
  - Drug ineffective [Unknown]
  - Extrapyramidal disorder [Not Recovered/Not Resolved]
  - Restlessness [Recovered/Resolved]
  - Confabulation [Recovered/Resolved]
  - Sedation [Unknown]
  - Somnolence [Unknown]
  - Aggression [Recovered/Resolved]
  - Memory impairment [Not Recovered/Not Resolved]
  - Abnormal behaviour [Unknown]
  - Speech disorder [Not Recovered/Not Resolved]
  - Insomnia [Recovered/Resolved]
  - Dysphagia [Unknown]

NARRATIVE: CASE EVENT DATE: 20110305
